FAERS Safety Report 7571978-2 (Version None)
Quarter: 2011Q2

REPORT INFORMATION
  Report Type: 
  Country: None (occurrence: None)
  Receive Date: 20110624
  Receipt Date: 20110623
  Transmission Date: 20111010
  Serious: Yes (Other)
  Sender: FDA-Public Use
  Company Number: US-UCBSA-016214

PATIENT
  Sex: Female
  Weight: 3.1 kg

DRUGS (5)
  1. KEPPRA XR [Suspect]
     Route: 064
     Dates: start: 20091101, end: 20100531
  2. KEPPRA [Suspect]
     Indication: EPILEPSY
     Dosage: 1000 DAILY DOSE
     Route: 064
     Dates: end: 20091101
  3. PRENATAL VITAMINS [Concomitant]
     Indication: PREGNANCY
     Route: 064
  4. FERROUS SULFATE TAB [Concomitant]
     Indication: BLOOD IRON DECREASED
     Route: 064
     Dates: start: 20091106
  5. FOLIC ACID [Concomitant]
     Indication: PREGNANCY
     Route: 064

REACTIONS (4)
  - DRUG EXPOSURE DURING PREGNANCY [None]
  - BRADYCARDIA FOETAL [None]
  - JAUNDICE [None]
  - HAEMANGIOMA [None]
